FAERS Safety Report 8210101-8 (Version None)
Quarter: 2012Q1

REPORT INFORMATION
  Report Type: 
  Country: None (occurrence: None)
  Receive Date: 20120314
  Receipt Date: 20111025
  Transmission Date: 20120608
  Serious: No
  Sender: FDA-Public Use
  Company Number: US-ASTRAZENECA-2010SE38944

PATIENT
  Age: 90 Year
  Sex: Female

DRUGS (3)
  1. TOPROL-XL [Suspect]
     Route: 048
  2. CRESTOR [Suspect]
     Route: 048
  3. DIOVAN [Suspect]

REACTIONS (3)
  - BLOOD CHOLESTEROL INCREASED [None]
  - ASTHENIA [None]
  - THERAPY CESSATION [None]
